FAERS Safety Report 12084920 (Version 3)
Quarter: 2016Q2

REPORT INFORMATION
  Report Type: Report from Study
  Country: FR (occurrence: FR)
  Receive Date: 20160217
  Receipt Date: 20160520
  Transmission Date: 20160815
  Serious: Yes (Hospitalization)
  Sender: FDA-Public Use
  Company Number: FR-SA-2015SA011119

PATIENT
  Age: 59 Year
  Sex: Male
  Weight: 75 kg

DRUGS (37)
  1. RANITIDINE. [Suspect]
     Active Substance: RANITIDINE
     Route: 048
  2. MEDROL [Suspect]
     Active Substance: METHYLPREDNISOLONE
     Route: 048
  3. PARACETAMOL [Suspect]
     Active Substance: ACETAMINOPHEN
     Route: 048
     Dates: start: 20160126, end: 20160128
  4. METHYLPREDNISOLONE. [Suspect]
     Active Substance: METHYLPREDNISOLONE
     Route: 042
     Dates: start: 20150122, end: 20150122
  5. CETIRIZINE [Suspect]
     Active Substance: CETIRIZINE HYDROCHLORIDE
     Route: 048
  6. ALEMTUZUMAB [Suspect]
     Active Substance: ALEMTUZUMAB
     Indication: RELAPSING-REMITTING MULTIPLE SCLEROSIS
     Route: 042
     Dates: start: 20160126, end: 20160128
  7. RANITIDINE. [Suspect]
     Active Substance: RANITIDINE
     Dosage: TIMES OF INTAKE: 12:40 HOURS AND 18:00 HOURS
     Route: 048
  8. ACICLOVIR [Suspect]
     Active Substance: ACYCLOVIR
     Route: 048
     Dates: start: 20150124, end: 20150217
  9. DOLIPRANE [Concomitant]
     Active Substance: ACETAMINOPHEN
     Route: 048
     Dates: start: 20150508, end: 20150508
  10. ACICLOVIR [Suspect]
     Active Substance: ACYCLOVIR
     Route: 048
     Dates: start: 20150509, end: 20150520
  11. METHYLPREDNISOLONE. [Suspect]
     Active Substance: METHYLPREDNISOLONE
     Route: 042
     Dates: start: 20150119, end: 20150120
  12. METHYLPREDNISOLONE. [Suspect]
     Active Substance: METHYLPREDNISOLONE
     Route: 042
     Dates: start: 20150123, end: 20150123
  13. DOLIPRANE [Concomitant]
     Active Substance: ACETAMINOPHEN
     Route: 048
     Dates: start: 20150201, end: 20150201
  14. CETIRIZINE [Suspect]
     Active Substance: CETIRIZINE HYDROCHLORIDE
     Route: 048
     Dates: start: 20150119, end: 20150126
  15. RANITIDINE. [Suspect]
     Active Substance: RANITIDINE
     Route: 048
     Dates: start: 20150119, end: 20150123
  16. RANITIDINE. [Suspect]
     Active Substance: RANITIDINE
     Dosage: AT 09:00 HOURS AND AT 18:00 HOURS
     Route: 048
     Dates: start: 20160126, end: 20160128
  17. ACICLOVIR [Suspect]
     Active Substance: ACYCLOVIR
     Route: 048
     Dates: start: 20160126, end: 20160128
  18. POLARAMINE [Suspect]
     Active Substance: DEXCHLORPHENIRAMINE MALEATE
     Dosage: DOSE:5 MILLIGRAM(S)/MILLILITRE
     Route: 042
     Dates: start: 20150119, end: 20150123
  19. LYRICA [Concomitant]
     Active Substance: PREGABALIN
     Indication: DRUG THERAPY
     Route: 048
     Dates: start: 201410
  20. DOLIPRANE [Concomitant]
     Active Substance: ACETAMINOPHEN
     Route: 048
     Dates: start: 20150704, end: 20150704
  21. ALEMTUZUMAB [Suspect]
     Active Substance: ALEMTUZUMAB
     Indication: RELAPSING-REMITTING MULTIPLE SCLEROSIS
     Route: 042
     Dates: start: 20150119, end: 20150123
  22. CETIRIZINE [Suspect]
     Active Substance: CETIRIZINE HYDROCHLORIDE
     Dosage: AS PROPHYLAXIS
     Route: 048
     Dates: start: 20150118, end: 20150123
  23. CETIRIZINE [Suspect]
     Active Substance: CETIRIZINE HYDROCHLORIDE
     Route: 048
  24. CETIRIZINE [Suspect]
     Active Substance: CETIRIZINE HYDROCHLORIDE
     Route: 048
     Dates: start: 20160126, end: 20160128
  25. DEPAKOTE [Concomitant]
     Active Substance: DIVALPROEX SODIUM
     Indication: PROPHYLAXIS
     Route: 048
     Dates: start: 2013
  26. INEXIUM [Concomitant]
     Active Substance: ESOMEPRAZOLE
     Indication: DRUG THERAPY
     Route: 048
     Dates: start: 20150119, end: 20150123
  27. DOLIPRANE [Concomitant]
     Active Substance: ACETAMINOPHEN
     Route: 048
     Dates: start: 20150506, end: 20150507
  28. ACICLOVIR [Suspect]
     Active Substance: ACYCLOVIR
     Route: 048
     Dates: start: 20160129, end: 20160225
  29. METHYLPREDNISOLONE. [Suspect]
     Active Substance: METHYLPREDNISOLONE
     Route: 042
     Dates: start: 20160126, end: 20160126
  30. METHYLPREDNISOLONE. [Suspect]
     Active Substance: METHYLPREDNISOLONE
     Route: 042
     Dates: start: 20160128, end: 20160128
  31. CETIRIZINE [Suspect]
     Active Substance: CETIRIZINE HYDROCHLORIDE
     Dosage: AS CURATIVE
     Route: 048
     Dates: start: 20160203, end: 20160209
  32. PARACETAMOL [Suspect]
     Active Substance: ACETAMINOPHEN
     Route: 048
     Dates: start: 20150119, end: 20150123
  33. ACICLOVIR [Suspect]
     Active Substance: ACYCLOVIR
     Route: 048
     Dates: start: 20150119, end: 20150123
  34. POLARAMINE [Suspect]
     Active Substance: DEXCHLORPHENIRAMINE MALEATE
     Route: 042
     Dates: start: 20160126, end: 20160128
  35. METHYLPREDNISOLONE. [Suspect]
     Active Substance: METHYLPREDNISOLONE
     Route: 042
     Dates: start: 20160127, end: 20160127
  36. METHYLPREDNISOLONE. [Suspect]
     Active Substance: METHYLPREDNISOLONE
     Route: 042
     Dates: start: 20150121, end: 20150121
  37. DOLIPRANE [Concomitant]
     Active Substance: ACETAMINOPHEN
     Route: 048
     Dates: start: 20150630, end: 20150630

REACTIONS (2)
  - Gamma-glutamyltransferase increased [Recovered/Resolved]
  - Hepatocellular injury [Recovered/Resolved]

NARRATIVE: CASE EVENT DATE: 20150123
